FAERS Safety Report 18786899 (Version 1)
Quarter: 2021Q1

REPORT INFORMATION
  Report Type: Report from Study
  Country: BR (occurrence: BR)
  Receive Date: 20210126
  Receipt Date: 20210126
  Transmission Date: 20210419
  Serious: Yes (Hospitalization, Other)
  Sender: FDA-Public Use
  Company Number: BR-TAKEDA-2021TUS004841

PATIENT
  Age: 22 Year
  Sex: Female

DRUGS (1)
  1. VEDOLIZUMAB [Suspect]
     Active Substance: VEDOLIZUMAB
     Indication: CROHN^S DISEASE
     Dosage: 300 MILLIGRAM
     Route: 042
     Dates: start: 20190601

REACTIONS (4)
  - Drug ineffective [Unknown]
  - Crohn^s disease [Recovering/Resolving]
  - Haemorrhage [Recovering/Resolving]
  - Ileal ulcer [Recovering/Resolving]

NARRATIVE: CASE EVENT DATE: 20201110
